FAERS Safety Report 20484929 (Version 1)
Quarter: 2022Q1

REPORT INFORMATION
  Report Type: Spontaneous
  Country: US (occurrence: US)
  Receive Date: 20220217
  Receipt Date: 20220217
  Transmission Date: 20220423
  Serious: No
  Sender: FDA-Public Use
  Company Number: US-SA-SAC20220214000234

PATIENT
  Age: 72 Year
  Sex: Female

DRUGS (1)
  1. DUPIXENT [Suspect]
     Active Substance: DUPILUMAB
     Indication: Asthma
     Dosage: 200 MG , QOW
     Route: 058
     Dates: start: 202110

REACTIONS (3)
  - Hair texture abnormal [Unknown]
  - Drug ineffective [Unknown]
  - Trichorrhexis [Unknown]

NARRATIVE: CASE EVENT DATE: 20211001
